FAERS Safety Report 6687911-1 (Version None)
Quarter: 2010Q2

REPORT INFORMATION
  Report Type: 
  Country: None (occurrence: None)
  Receive Date: 20100420
  Receipt Date: 20100412
  Transmission Date: 20101027
  Serious: Yes (Other)
  Sender: FDA-Public Use
  Company Number: US-ASTRAZENECA-2009SE13397

PATIENT
  Age: 16355 Day
  Sex: Female

DRUGS (15)
  1. SEROQUEL [Suspect]
     Route: 048
     Dates: start: 20011127
  2. PREMARIN [Concomitant]
     Dates: start: 20011127
  3. ULTRAM [Concomitant]
     Dates: start: 19990512
  4. AMITRIPTYLINE [Concomitant]
     Dates: start: 19990617
  5. PROMETHAZINE [Concomitant]
     Dosage: 6.25 MG/5ML
     Dates: start: 19990907
  6. HYDROCHLOROTHIAZIDE [Concomitant]
     Dates: start: 20020131
  7. VASOTEC [Concomitant]
     Dates: start: 20020131
  8. PROZAC [Concomitant]
     Dates: start: 20020131
  9. TOPROL-XL [Concomitant]
  10. HYZAAR [Concomitant]
  11. IMDUR [Concomitant]
  12. AVANDAMET [Concomitant]
  13. CYMBALTA [Concomitant]
  14. LEVOXYL [Concomitant]
  15. LIPITOR [Concomitant]

REACTIONS (2)
  - DIABETIC NEUROPATHY [None]
  - TYPE 2 DIABETES MELLITUS [None]
